FAERS Safety Report 4917665-8 (Version None)
Quarter: 2006Q1

REPORT INFORMATION
  Report Type: 
  Country: None (occurrence: None)
  Receive Date: 20060221
  Receipt Date: 20060209
  Transmission Date: 20060701
  Serious: Yes (Other)
  Sender: FDA-Public Use
  Company Number: AU-GILEAD-2006-0009213

PATIENT

DRUGS (6)
  1. VIREAD [Suspect]
     Route: 064
     Dates: start: 20050819
  2. KALETRA [Concomitant]
     Route: 064
     Dates: start: 20050819
  3. COMBIVIR [Concomitant]
     Route: 064
     Dates: start: 20050819
  4. MULTI-VITAMIN [Concomitant]
     Route: 064
     Dates: start: 20050101
  5. ASCORBIC ACID [Concomitant]
     Route: 064
     Dates: start: 20050101
  6. IRON [Concomitant]
     Route: 064
     Dates: start: 20050819

REACTIONS (2)
  - DRUG EXPOSURE DURING PREGNANCY [None]
  - SMALL FOR DATES BABY [None]
